FAERS Safety Report 14567206 (Version 2)
Quarter: 2018Q1

REPORT INFORMATION
  Report Type: Spontaneous
  Country: US (occurrence: US)
  Receive Date: 20180223
  Receipt Date: 20180320
  Transmission Date: 20180509
  Serious: Yes (Other)
  Sender: FDA-Public Use
  Company Number: US-PFIZER INC-2018076385

PATIENT
  Age: 73 Year
  Sex: Female
  Weight: 64 kg

DRUGS (7)
  1. CLONAZEPAM. [Concomitant]
     Active Substance: CLONAZEPAM
     Dosage: UNK
  2. AZATHIOPRINE. [Concomitant]
     Active Substance: AZATHIOPRINE
     Dosage: UNK
  3. METHOTREXATE SODIUM. [Suspect]
     Active Substance: METHOTREXATE SODIUM
     Indication: RHEUMATOID ARTHRITIS
     Dosage: UNK
     Dates: start: 20180209
  4. ACYCLOVIR. [Concomitant]
     Active Substance: ACYCLOVIR
     Dosage: UNK
  5. ALBUTEROL. [Concomitant]
     Active Substance: ALBUTEROL
     Dosage: UNK
  6. RITUXAN [Suspect]
     Active Substance: RITUXIMAB
     Indication: RHEUMATOID ARTHRITIS
     Dosage: UNK
     Dates: start: 20180209
  7. AMLODIPINE [Concomitant]
     Active Substance: AMLODIPINE BESYLATE
     Dosage: UNK

REACTIONS (18)
  - Tremor [Unknown]
  - Urticaria [Unknown]
  - Pruritus [Unknown]
  - Vision blurred [Unknown]
  - Hyperhidrosis [Unknown]
  - Asthenia [Unknown]
  - Mental impairment [Unknown]
  - Mouth swelling [Unknown]
  - Drug ineffective [Unknown]
  - Hypersensitivity [Recovering/Resolving]
  - Arthralgia [Unknown]
  - Lip swelling [Unknown]
  - Confusional state [Unknown]
  - Nausea [Unknown]
  - Decreased appetite [Unknown]
  - Body temperature increased [Unknown]
  - Myalgia [Unknown]
  - Fatigue [Unknown]

NARRATIVE: CASE EVENT DATE: 20180209
